FAERS Safety Report 18209944 (Version 1)
Quarter: 2020Q3

REPORT INFORMATION
  Report Type: Spontaneous
  Country: TW (occurrence: TW)
  Receive Date: 20200828
  Receipt Date: 20200828
  Transmission Date: 20201103
  Serious: Yes (Death, Life-Threatening, Other)
  Sender: FDA-Public Use
  Company Number: TW-009507513-2007TWN009138

PATIENT
  Age: 64 Year
  Sex: Female

DRUGS (2)
  1. AFATINIB [Suspect]
     Active Substance: AFATINIB
     Indication: HEAD AND NECK CANCER
     Dosage: 30 MILLIGRAM, QD
     Route: 048
     Dates: start: 20200529, end: 20200708
  2. KEYTRUDA [Suspect]
     Active Substance: PEMBROLIZUMAB
     Indication: HEAD AND NECK CANCER
     Dosage: 100 MILLIGRAM, ONCE
     Dates: start: 20200604, end: 20200604

REACTIONS (5)
  - Stevens-Johnson syndrome [Not Recovered/Not Resolved]
  - Pneumonia [Fatal]
  - Asthenia [Unknown]
  - Hypoxia [Unknown]
  - Cachexia [Unknown]

NARRATIVE: CASE EVENT DATE: 2020
